FAERS Safety Report 8423665-6 (Version None)
Quarter: 2012Q2

REPORT INFORMATION
  Report Type: 
  Country: None (occurrence: None)
  Receive Date: 20120608
  Receipt Date: 20120607
  Transmission Date: 20120825
  Serious: Yes (Hospitalization)
  Sender: FDA-Public Use
  Company Number: PHHO2011DK020381

PATIENT
  Sex: Male
  Weight: 114.6 kg

DRUGS (21)
  1. FUROSEMIDE [Suspect]
     Dosage: 120 MG, TID
     Route: 048
     Dates: start: 20111226, end: 20120329
  2. SPIRONOLACTONE [Concomitant]
     Indication: CARDIAC FAILURE
     Dosage: 25 MG, QD
     Route: 048
     Dates: start: 20000128
  3. METOPROLOL [Concomitant]
     Indication: CARDIAC FAILURE
     Dosage: 200 MG, QD
     Route: 048
     Dates: start: 20070808
  4. BLINDED ALISKIREN [Suspect]
     Dosage: CODE NOT BROKEN
     Route: 048
     Dates: start: 20111221
  5. HYDROCHLOROTHIAZDE TAB [Concomitant]
     Indication: CARDIAC FAILURE
     Dosage: 2.5 MG, QD
     Dates: start: 20120327, end: 20120329
  6. BUMETANIDE [Suspect]
     Dosage: 8 MG, UNK
     Route: 042
     Dates: start: 20111203, end: 20111213
  7. ENALAPRIL MALEATE [Suspect]
     Indication: CARDIAC FAILURE
     Dosage: CODE NOT BROKEN
     Route: 048
     Dates: start: 20110708, end: 20111130
  8. ENALAPRIL MALEATE [Suspect]
     Dosage: CODE NOT BROKEN
     Route: 048
     Dates: start: 20111221
  9. WARFARIN SODIUM [Concomitant]
     Indication: CARDIAC FAILURE
     Dosage: ON DEMAND
     Route: 048
     Dates: start: 19931001
  10. SPIRONOLACTONE [Concomitant]
     Dosage: 25 MG, UNK
     Route: 048
     Dates: start: 20120521
  11. FUROSEMIDE [Suspect]
     Dosage: UNK
     Dates: start: 20111213
  12. METOLAZONE [Suspect]
     Indication: CARDIAC FAILURE
     Dosage: 2.5 MG, UNK
     Route: 048
     Dates: start: 20111205, end: 20111208
  13. BLINDED NO TREATMENT RECEIVED [Suspect]
     Indication: CARDIAC FAILURE
     Dosage: CODE NOT BROKEN
     Route: 048
     Dates: start: 20110708, end: 20111130
  14. SPIRONOLACTONE [Concomitant]
     Dosage: 2 MG X 3
     Route: 048
     Dates: start: 20120521
  15. DIGOXIN [Concomitant]
     Dosage: 187.5 UG, UNK
     Route: 048
     Dates: start: 20111226
  16. BUMETANIDE [Suspect]
     Dosage: 2 MG X 4
     Route: 042
     Dates: start: 20111203, end: 20111213
  17. FUROSEMIDE [Suspect]
     Dosage: 120 + 80 + 120 MG
     Dates: start: 20111214, end: 20111220
  18. BLINDED ALISKIREN [Suspect]
     Indication: CARDIAC FAILURE
     Dosage: CODE NOT BROKEN
     Route: 048
     Dates: start: 20110708, end: 20111130
  19. BLINDED NO TREATMENT RECEIVED [Suspect]
     Dosage: CODE NOT BROKEN
     Route: 048
     Dates: start: 20111221
  20. DIGOXIN [Concomitant]
     Indication: CARDIAC FAILURE
     Dosage: 187.5 UG, QD
     Dates: start: 20080519, end: 20111208
  21. SIMVASTATIN [Concomitant]
     Indication: CARDIAC FAILURE
     Dosage: 40 MG, QD
     Route: 048
     Dates: start: 20091202

REACTIONS (2)
  - BLOOD CREATININE INCREASED [None]
  - DISEASE PROGRESSION [None]
